FAERS Safety Report 4449418-1 (Version None)
Quarter: 2004Q3

REPORT INFORMATION
  Report Type: 
  Country: None (occurrence: None)
  Receive Date: 20040914
  Receipt Date: 20040830
  Transmission Date: 20050211
  Serious: Yes (Hospitalization)
  Sender: FDA-Public Use
  Company Number: M2004.1129

PATIENT
  Age: 68 Year
  Sex: Male

DRUGS (2)
  1. METFORMIN HCL [Suspect]
     Indication: DIABETES MELLITUS NON-INSULIN-DEPENDENT
     Dosage: 2000 MG DAILY
  2. GLIBENCLAMIDE [Suspect]
     Indication: DIABETES MELLITUS NON-INSULIN-DEPENDENT

REACTIONS (12)
  - ASTHENIA [None]
  - ATROPHY [None]
  - CEREBROVASCULAR ACCIDENT [None]
  - CLONUS [None]
  - DIFFICULTY IN WALKING [None]
  - EXTENSOR PLANTAR RESPONSE [None]
  - FALL [None]
  - MYELITIS [None]
  - PARAPARESIS [None]
  - REFLEXES ABNORMAL [None]
  - SPINAL CORD DISORDER [None]
  - VITAMIN B12 DEFICIENCY [None]
